FAERS Safety Report 8723913 (Version 3)
Quarter: 2012Q4

REPORT INFORMATION
  Report Type: 
  Country: US (occurrence: US)
  Receive Date: 20120815
  Receipt Date: 20121025
  Transmission Date: 20130627
  Serious: Yes (Other)
  Sender: FDA-Public Use
  Company Number: US-PFIZER INC-2012195483

PATIENT
  Age: 59 Year
  Sex: Female
  Weight: 159 kg

DRUGS (6)
  1. NEURONTIN [Suspect]
     Indication: NEURALGIA
     Dosage: 300 mg, daily
     Dates: start: 2006
  2. NEURONTIN [Suspect]
     Indication: BACK INJURY
     Dosage: 300 mg, 3x/day
     Dates: start: 200907
  3. HYDROCHLOROTHIAZIDE [Concomitant]
     Indication: BLOOD PRESSURE ABNORMAL
     Dosage: 25 mg, daily
  4. LISINOPRIL [Concomitant]
     Indication: BLOOD PRESSURE ABNORMAL
     Dosage: 20 mg, daily
  5. FLEXERIL [Concomitant]
     Indication: MUSCLE SPASMS
     Dosage: 10 mg, as needed
     Route: 048
  6. CLONAZEPAM [Concomitant]
     Indication: MUSCLE SPASMS
     Dosage: 324 mg, as needed

REACTIONS (3)
  - Neuralgia [Unknown]
  - Urticaria [Recovered/Resolved]
  - Rash [Unknown]
